FAERS Safety Report 25091827 (Version 1)
Quarter: 2025Q1

REPORT INFORMATION
  Report Type: Spontaneous
  Country: JP (occurrence: JP)
  Receive Date: 20250318
  Receipt Date: 20250318
  Transmission Date: 20250408
  Serious: Yes (Other)
  Sender: AMGEN
  Company Number: JP-TAKEDA-2024TJP007191

PATIENT
  Age: 75 Year
  Sex: Female

DRUGS (2)
  1. VECTIBIX [Suspect]
     Active Substance: PANITUMUMAB
     Indication: Colorectal cancer
     Dosage: UNK, Q2WEEKS
     Route: 041
  2. VECTIBIX [Suspect]
     Active Substance: PANITUMUMAB
     Route: 041
     Dates: start: 202502

REACTIONS (3)
  - Hypomagnesaemia [Recovered/Resolved]
  - Fracture [Recovered/Resolved]
  - Fall [Unknown]
